FAERS Safety Report 9089740 (Version 1)
Quarter: 2013Q1

REPORT INFORMATION
  Report Type: Spontaneous
  Country: US (occurrence: US)
  Receive Date: 20130201
  Receipt Date: 20130201
  Transmission Date: 20140127
  Serious: No
  Sender: FDA-Public Use
  Company Number: US-PFIZER INC-2013038780

PATIENT
  Age: 36 Year
  Sex: Female
  Weight: 90.7 kg

DRUGS (2)
  1. PREMPRO [Suspect]
     Indication: HORMONE REPLACEMENT THERAPY
     Dosage: 0.625/2.5 MG, DAILY
     Dates: start: 201002
  2. PREMPRO [Suspect]
     Indication: ENDOMETRIOSIS
     Dosage: 0.625/2.5 MG, DAILY
     Dates: start: 2012

REACTIONS (1)
  - Weight increased [Unknown]
